FAERS Safety Report 5631165-1 (Version None)
Quarter: 2008Q1

REPORT INFORMATION
  Report Type: 
  Country: None (occurrence: None)
  Receive Date: 20080219
  Receipt Date: 20080208
  Transmission Date: 20080703
  Serious: Yes (Death, Other)
  Sender: FDA-Public Use
  Company Number: GB-PFIZER INC-2008013063

PATIENT
  Age: 48 Year
  Sex: Male

DRUGS (3)
  1. SERTRALINE [Suspect]
  2. CODEINE PHOSPHATE [Suspect]
  3. LORAZEPAM [Suspect]

REACTIONS (2)
  - RESPIRATORY DEPRESSION [None]
  - SEROTONIN SYNDROME [None]
